FAERS Safety Report 20378644 (Version 1)
Quarter: 2022Q1

REPORT INFORMATION
  Report Type: Spontaneous
  Country: US (occurrence: None)
  Receive Date: 20220125
  Receipt Date: 20220125
  Transmission Date: 20220423
  Serious: Yes (Other)
  Sender: FDA-Public Use
  Company Number: None

PATIENT
  Age: 60 Year
  Sex: Female
  Weight: 67.1 kg

DRUGS (2)
  1. BAMLANIVIMAB [Suspect]
     Active Substance: BAMLANIVIMAB
     Indication: COVID-19
     Dosage: OTHER FREQUENCY : ONCE;?
     Route: 042
     Dates: start: 20211230, end: 20211230
  2. ETESEVIMAB [Suspect]
     Active Substance: ETESEVIMAB
     Indication: COVID-19
     Dosage: OTHER FREQUENCY : ONCE;?
     Route: 042
     Dates: start: 20211230, end: 20211230

REACTIONS (8)
  - Infusion related reaction [None]
  - Feeling abnormal [None]
  - Back pain [None]
  - Arthralgia [None]
  - Chest discomfort [None]
  - Erythema [None]
  - Erythema [None]
  - Refusal of treatment by patient [None]

NARRATIVE: CASE EVENT DATE: 20211230
